FAERS Safety Report 5007843-4 (Version None)
Quarter: 2006Q2

REPORT INFORMATION
  Report Type: 
  Country: None (occurrence: None)
  Receive Date: 20060518
  Receipt Date: 20060511
  Transmission Date: 20061013
  Serious: No
  Sender: FDA-Public Use
  Company Number: 06H-122-0307840-00

PATIENT
  Age: 25 Year
  Sex: Female

DRUGS (1)
  1. SUCCINYLCHOLINE CHLORIDE [Suspect]
     Indication: GENERAL ANAESTHESIA

REACTIONS (11)
  - ANAPHYLACTIC REACTION [None]
  - BRONCHOSPASM [None]
  - CARDIO-RESPIRATORY DISTRESS [None]
  - DRUG EXPOSURE DURING PREGNANCY [None]
  - HYPOTENSION [None]
  - HYPOXIA [None]
  - OBSTETRICAL PULMONARY EMBOLISM [None]
  - OEDEMA [None]
  - POST PROCEDURAL COMPLICATION [None]
  - RASH [None]
  - TYPE IV HYPERSENSITIVITY REACTION [None]
